FAERS Safety Report 12204389 (Version 1)
Quarter: 2016Q1

REPORT INFORMATION
  Report Type: Spontaneous
  Country: BR (occurrence: BR)
  Receive Date: 20160323
  Receipt Date: 20160323
  Transmission Date: 20160526
  Serious: Yes (Hospitalization)
  Sender: FDA-Public Use
  Company Number: PHHY2016BR037634

PATIENT
  Sex: Male
  Weight: 74 kg

DRUGS (11)
  1. AMITRIPTYLINE [Concomitant]
     Active Substance: AMITRIPTYLINE
     Indication: PAIN
     Route: 065
  2. DRUSOLOL [Concomitant]
     Indication: PRODUCT USED FOR UNKNOWN INDICATION
     Route: 065
  3. LYRICA [Suspect]
     Active Substance: PREGABALIN
     Indication: NEURALGIA
     Dosage: 75 MG, QD
     Route: 065
  4. LYRICA [Suspect]
     Active Substance: PREGABALIN
     Dosage: 150 MG, QD
     Route: 065
  5. ENBREL [Concomitant]
     Active Substance: ETANERCEPT
     Indication: ARTHRITIS
     Dosage: UNK
     Route: 065
     Dates: start: 201509
  6. DEPURA [Concomitant]
     Active Substance: CHOLECALCIFEROL
     Indication: VITAMIN D DECREASED
     Dosage: UNK
     Route: 065
  7. PRELONE [Concomitant]
     Active Substance: PREDNISOLONE
     Indication: PRODUCT USED FOR UNKNOWN INDICATION
     Dosage: UNK
     Route: 065
  8. LYRICA [Suspect]
     Active Substance: PREGABALIN
     Dosage: 2 DF (TWO TABLETS OF 150 MG), BID (IN THE MORNING AND AT NIGHT)
     Route: 065
  9. CARBAMAZEPINE. [Suspect]
     Active Substance: CARBAMAZEPINE
     Indication: PAIN
     Route: 065
  10. BRASART HCT [Concomitant]
     Indication: BLOOD PRESSURE ABNORMAL
     Dosage: UNK
     Route: 065
  11. SINVASTACOR [Concomitant]
     Active Substance: SIMVASTATIN
     Indication: BLOOD CHOLESTEROL ABNORMAL
     Route: 065

REACTIONS (6)
  - Product use issue [Unknown]
  - Toxicity to various agents [Unknown]
  - Weight increased [Not Recovered/Not Resolved]
  - Neuralgia [Not Recovered/Not Resolved]
  - Joint swelling [Unknown]
  - Dizziness [Recovered/Resolved]
